FAERS Safety Report 19497200 (Version 1)
Quarter: 2021Q3

REPORT INFORMATION
  Report Type: Spontaneous
  Country: US (occurrence: US)
  Receive Date: 20210706
  Receipt Date: 20210706
  Transmission Date: 20211014
  Serious: Yes (Other)
  Sender: FDA-Public Use
  Company Number: US-SA-2021SA219031

PATIENT
  Age: 42 Year
  Sex: Male

DRUGS (1)
  1. ZANTAC [Suspect]
     Active Substance: RANITIDINE HYDROCHLORIDE
     Indication: DYSPEPSIA
     Dosage: 75 MG, QD
     Dates: start: 199801, end: 201901

REACTIONS (1)
  - Bladder cancer stage I, with cancer in situ [Recovering/Resolving]

NARRATIVE: CASE EVENT DATE: 20191001
